FAERS Safety Report 23593737 (Version 3)
Quarter: 2024Q2

REPORT INFORMATION
  Report Type: Spontaneous
  Country: IL (occurrence: IL)
  Receive Date: 20240304
  Receipt Date: 20240403
  Transmission Date: 20240716
  Serious: Yes (Other)
  Sender: FDA-Public Use
  Company Number: IL-ALXN-202402EEA001844IL

PATIENT
  Age: 3 Year
  Sex: Male

DRUGS (2)
  1. KANUMA [Suspect]
     Active Substance: SEBELIPASE ALFA
     Indication: Lysosomal acid lipase deficiency
     Dosage: UNK
     Route: 065
     Dates: start: 2021
  2. KANUMA [Suspect]
     Active Substance: SEBELIPASE ALFA
     Dosage: 5 MILLIGRAM/KILOGRAM
     Route: 065

REACTIONS (2)
  - Lipoedema [Recovering/Resolving]
  - Abdominal lymphadenopathy [Recovering/Resolving]
